FAERS Safety Report 7271792-1 (Version None)
Quarter: 2011Q1

REPORT INFORMATION
  Report Type: 
  Country: None (occurrence: None)
  Receive Date: 20110126
  Receipt Date: 20110117
  Transmission Date: 20110831
  Serious: Yes (Hospitalization)
  Sender: FDA-Public Use
  Company Number: GER/UKI/10/0013361

PATIENT
  Age: 73 Year
  Sex: Female

DRUGS (9)
  1. OMEPRAZOLE [Suspect]
     Indication: GASTROOESOPHAGEAL REFLUX DISEASE
     Dates: start: 19990101
  2. PANTOPRAZOLE SODIUM [Suspect]
     Indication: PRODUCT USED FOR UNKNOWN INDICATION
     Dosage: 40 MG, 1 IN 1 D
  3. RANITIDINE [Suspect]
     Indication: PRODUCT USED FOR UNKNOWN INDICATION
  4. MAGNESIUM (MAGNESIUM) [Concomitant]
  5. MAGNESIUM SULFATE [Concomitant]
  6. CALCIUM (CALCIUM) [Concomitant]
  7. VITAMIN D [Concomitant]
  8. CIMETIDINE [Concomitant]
  9. FUROSEMIDE [Concomitant]

REACTIONS (11)
  - RASH [None]
  - RASH PRURITIC [None]
  - PARAESTHESIA [None]
  - LETHARGY [None]
  - MUSCLE SPASMS [None]
  - BALANCE DISORDER [None]
  - ARTHRALGIA [None]
  - TETANY [None]
  - HYPOMAGNESAEMIA [None]
  - HYPOCALCAEMIA [None]
  - FALL [None]
